FAERS Safety Report 7585400-3 (Version None)
Quarter: 2011Q2

REPORT INFORMATION
  Report Type: 
  Country: None (occurrence: None)
  Receive Date: 20110628
  Receipt Date: 20110628
  Transmission Date: 20111010
  Serious: Yes (Life-Threatening, Hospitalization, Other)
  Sender: FDA-Public Use
  Company Number: None

PATIENT
  Age: 68 Year
  Sex: Female
  Weight: 49.8957 kg

DRUGS (1)
  1. ALEVE (CAPLET) [Suspect]
     Indication: BACK PAIN
     Dosage: 2 TABLETS PER DAY EVERY 12 HOURS PO
     Route: 048
     Dates: start: 20101222, end: 20110115

REACTIONS (1)
  - SUPRAVENTRICULAR TACHYCARDIA [None]
